FAERS Safety Report 11826657 (Version 2)
Quarter: 2015Q4

REPORT INFORMATION
  Report Type: Spontaneous
  Country: BR (occurrence: BR)
  Receive Date: 20151211
  Receipt Date: 20151229
  Transmission Date: 20160305
  Serious: Yes (Hospitalization, Other)
  Sender: FDA-Public Use
  Company Number: BR-BAYER-2015-480857

PATIENT
  Sex: Male

DRUGS (1)
  1. CIPRO [Suspect]
     Active Substance: CIPROFLOXACIN HYDROCHLORIDE
     Indication: INFECTION
     Dosage: UNK
     Route: 048

REACTIONS (19)
  - Back pain [None]
  - Asthenia [None]
  - Muscle spasms [None]
  - Abdominal pain upper [None]
  - Insomnia [None]
  - Hypoaesthesia [None]
  - Burning sensation [None]
  - Abdominal pain [None]
  - Headache [Recovered/Resolved]
  - Myalgia [None]
  - Neuropathy peripheral [None]
  - Musculoskeletal disorder [None]
  - Depression [None]
  - Myocardial infarction [None]
  - Confusional state [None]
  - Chest pain [None]
  - Tremor [None]
  - Paraesthesia [None]
  - Intracranial pressure increased [None]
